FAERS Safety Report 5061468-3 (Version None)
Quarter: 2006Q3

REPORT INFORMATION
  Report Type: 
  Country: None (occurrence: None)
  Receive Date: 20060721
  Receipt Date: 20060711
  Transmission Date: 20061208
  Serious: Yes (Other)
  Sender: FDA-Public Use
  Company Number: 25273

PATIENT
  Age: 79 Year
  Sex: Male

DRUGS (1)
  1. NIACIN [Suspect]

REACTIONS (9)
  - BLOOD ALKALINE PHOSPHATASE INCREASED [None]
  - BLOOD BILIRUBIN INCREASED [None]
  - CARBOHYDRATE ANTIGEN 19-9 INCREASED [None]
  - CARCINOEMBRYONIC ANTIGEN INCREASED [None]
  - GAMMA-GLUTAMYLTRANSFERASE INCREASED [None]
  - JAUNDICE [None]
  - LIVER FUNCTION TEST ABNORMAL [None]
  - SELF-MEDICATION [None]
  - WEIGHT DECREASED [None]
